FAERS Safety Report 7486423-5 (Version None)
Quarter: 2011Q2

REPORT INFORMATION
  Report Type: 
  Country: None (occurrence: None)
  Receive Date: 20110516
  Receipt Date: 20110516
  Transmission Date: 20111010
  Serious: Yes (Other)
  Sender: FDA-Public Use
  Company Number: None

PATIENT
  Sex: Male
  Weight: 92.9874 kg

DRUGS (1)
  1. PAXIL [Suspect]
     Indication: DEPRESSION
     Dates: start: 20000615, end: 20050114

REACTIONS (7)
  - DRUG DEPENDENCE [None]
  - VERTIGO [None]
  - TREMOR [None]
  - FEAR [None]
  - ANXIETY [None]
  - IMPAIRED WORK ABILITY [None]
  - WITHDRAWAL SYNDROME [None]
